FAERS Safety Report 4305730-8 (Version None)
Quarter: 2004Q1

REPORT INFORMATION
  Report Type: 
  Country: None (occurrence: None)
  Receive Date: 20040225
  Receipt Date: 20040209
  Transmission Date: 20041129
  Serious: Yes (Disabling)
  Sender: FDA-Public Use
  Company Number: NLWYE546530JAN04

PATIENT
  Age: 33 Year
  Sex: Female

DRUGS (4)
  1. EFFEXOR [Suspect]
     Indication: DEPRESSION
     Dosage: 37.5 MG 1 X PER 1 DAY, ORAL
     Route: 048
     Dates: start: 20031111, end: 20031120
  2. ZESTRIL [Concomitant]
  3. LANTUS [Concomitant]
  4. PENFILL R (INSULIN HUMAN) [Concomitant]

REACTIONS (4)
  - BLOOD GLUCOSE INCREASED [None]
  - CONDITION AGGRAVATED [None]
  - DIZZINESS [None]
  - MYALGIA [None]
